FAERS Safety Report 5335918-9 (Version None)
Quarter: 2007Q1

REPORT INFORMATION
  Report Type: 
  Country: None (occurrence: None)
  Receive Date: 20070302
  Receipt Date: 20061201
  Transmission Date: 20070707
  Serious: No
  Sender: FDA-Public Use
  Company Number: PHEH2006US14309

PATIENT
  Age: 31 Year
  Sex: Female
  Weight: 54.5 kg

DRUGS (11)
  1. EXJADE [Suspect]
     Indication: IRON OVERLOAD
     Dosage: 500 MG, QD, ORAL
     Route: 048
     Dates: start: 20061024
  2. BACTRIM DS [Concomitant]
  3. CALCITRIOL [Concomitant]
  4. TIZANIDINE HCL [Concomitant]
  5. MULTIVITAMINS, PLAIN (NO INGREDIENTS/SUBSTANCES) [Concomitant]
  6. FOLIC ACID [Concomitant]
  7. ALDARA [Concomitant]
  8. ALBUTEROL [Concomitant]
  9. ATROVENT [Concomitant]
  10. ESTROGENS SOL/INJ [Concomitant]
  11. INFLUENZA VACCINE (INFLUENZA VACCINE) [Concomitant]

REACTIONS (3)
  - CONDITION AGGRAVATED [None]
  - NAUSEA [None]
  - SKIN PAPILLOMA [None]
